FAERS Safety Report 12195100 (Version 1)
Quarter: 2016Q1

REPORT INFORMATION
  Report Type: Spontaneous
  Country: US (occurrence: None)
  Receive Date: 20160318
  Receipt Date: 20160318
  Transmission Date: 20160526
  Serious: Yes (Hospitalization)
  Sender: FDA-Public Use
  Company Number: None

PATIENT
  Age: 28 Year
  Sex: Male

DRUGS (2)
  1. VINPOCETINE [Suspect]
     Active Substance: VINPOCETINE
     Indication: LOSS OF CONSCIOUSNESS
     Dates: start: 20160301, end: 20160314
  2. VINPOCETINE [Suspect]
     Active Substance: VINPOCETINE
     Indication: SEIZURE
     Dates: start: 20160301, end: 20160314

REACTIONS (4)
  - Hallucination [None]
  - Seizure [None]
  - Loss of consciousness [None]
  - Deja vu [None]

NARRATIVE: CASE EVENT DATE: 20160315
